FAERS Safety Report 7272180-4 (Version None)
Quarter: 2011Q1

REPORT INFORMATION
  Report Type: 
  Country: None (occurrence: None)
  Receive Date: 20110203
  Receipt Date: 20110119
  Transmission Date: 20110831
  Serious: Yes (Other)
  Sender: FDA-Public Use
  Company Number: PHHY2011US04996

PATIENT
  Age: 41 Year
  Sex: Female

DRUGS (2)
  1. ASPIRIN+CAFFEINE [Suspect]
     Dosage: UNK
  2. METFORMIN HCL [Suspect]
     Indication: TYPE 2 DIABETES MELLITUS

REACTIONS (4)
  - OEDEMA [None]
  - SKIN LESION [None]
  - RASH MACULAR [None]
  - DRUG ERUPTION [None]
